FAERS Safety Report 6733925-2 (Version None)
Quarter: 2010Q2

REPORT INFORMATION
  Report Type: 
  Country: None (occurrence: None)
  Receive Date: 20100520
  Receipt Date: 20100518
  Transmission Date: 20101027
  Serious: Yes (Other)
  Sender: FDA-Public Use
  Company Number: FI-ROCHE-703867

PATIENT
  Sex: Female

DRUGS (1)
  1. XELODA [Suspect]
     Dosage: FREQUENCY: 4 + 4 TABLETS (4000MG) PER DAY
     Route: 048
     Dates: start: 20100501, end: 20100518

REACTIONS (2)
  - ANGINA PECTORIS [None]
  - LOSS OF CONSCIOUSNESS [None]
